FAERS Safety Report 4874086-4 (Version None)
Quarter: 2006Q1

REPORT INFORMATION
  Report Type: 
  Country: None (occurrence: None)
  Receive Date: 20060104
  Receipt Date: 20051221
  Transmission Date: 20060701
  Serious: Yes (Other)
  Sender: FDA-Public Use
  Company Number: 2005172115

PATIENT
  Age: 59 Year
  Sex: Male
  Weight: 79.8331 kg

DRUGS (2)
  1. GABAPENTIN [Suspect]
     Indication: TENDON DISORDER
     Dosage: 400 MG (200 MG 2 IN 1D)
     Dates: start: 20050909
  2. DOXAZOSIN MESYLATE [Concomitant]

REACTIONS (4)
  - CONDITION AGGRAVATED [None]
  - DRUG INEFFECTIVE [None]
  - DRY EYE [None]
  - OCULAR HYPERAEMIA [None]
